FAERS Safety Report 20510717 (Version 1)
Quarter: 2022Q1

REPORT INFORMATION
  Report Type: Spontaneous
  Country: GB (occurrence: GB)
  Receive Date: 20220224
  Receipt Date: 20220224
  Transmission Date: 20220423
  Serious: Yes (Other)
  Sender: FDA-Public Use
  Company Number: GB-NOVARTISPH-NVSC2022GB041030

PATIENT
  Sex: Female
  Weight: 63 kg

DRUGS (1)
  1. BRINZOLAMIDE [Suspect]
     Active Substance: BRINZOLAMIDE
     Indication: Glaucoma
     Dosage: UNK
     Route: 065

REACTIONS (3)
  - Acidosis [Not Recovered/Not Resolved]
  - Bladder pain [Unknown]
  - Pollakiuria [Unknown]
